FAERS Safety Report 12155904 (Version 3)
Quarter: 2016Q1

REPORT INFORMATION
  Report Type: Spontaneous
  Country: JP (occurrence: JP)
  Receive Date: 20160307
  Receipt Date: 20160329
  Transmission Date: 20160526
  Serious: Yes (Hospitalization)
  Sender: FDA-Public Use
  Company Number: JP-BIOCRYST PHARMACEUTICALS, INC.-2016BCR00071

PATIENT
  Age: 4 Year
  Sex: Male

DRUGS (3)
  1. RAPIACTA [Suspect]
     Active Substance: PERAMIVIR
     Indication: INFLUENZA
     Dosage: 150 MG, UNK
     Route: 042
     Dates: start: 20160218, end: 20160218
  2. ACELIO [Concomitant]
     Active Substance: ACETAMINOPHEN
     Indication: PYREXIA
     Dosage: 160 MG, 1X/DAY
     Route: 042
     Dates: start: 20160218, end: 20160218
  3. DIAPP [Concomitant]
     Active Substance: DIAZEPAM
     Indication: FEBRILE CONVULSION
     Dosage: 12 MG, 1X/DAY
     Route: 054
     Dates: start: 20160217, end: 20160218

REACTIONS (1)
  - Rhabdomyolysis [Recovering/Resolving]

NARRATIVE: CASE EVENT DATE: 20160219
